FAERS Safety Report 16128834 (Version 1)
Quarter: 2019Q1

REPORT INFORMATION
  Report Type: Spontaneous
  Country: US (occurrence: US)
  Receive Date: 20190328
  Receipt Date: 20190328
  Transmission Date: 20190418
  Serious: Yes (Other)
  Sender: FDA-Public Use
  Company Number: US-JNJFOC-20190330668

PATIENT
  Sex: Female

DRUGS (4)
  1. PIRMELLA [Suspect]
     Active Substance: ETHINYL ESTRADIOL\NORETHINDRONE
     Indication: ENDOMETRIOSIS
     Route: 065
  2. LEVLEN [Suspect]
     Active Substance: ETHINYL ESTRADIOL\LEVONORGESTREL
     Indication: ENDOMETRIOSIS
     Route: 065
  3. ORTHO NOVUM [Suspect]
     Active Substance: MESTRANOL\NORETHINDRONE
     Indication: ENDOMETRIOSIS
     Route: 065
  4. ETHINYLESTRADIOL W/NORETHINDRONE [Suspect]
     Active Substance: ETHINYL ESTRADIOL\NORETHINDRONE
     Indication: ENDOMETRIOSIS
     Route: 065

REACTIONS (8)
  - Venous injury [Unknown]
  - Ovarian cyst [Unknown]
  - Compartment syndrome [Unknown]
  - Product use in unapproved indication [Unknown]
  - Haemorrhage [Not Recovered/Not Resolved]
  - Off label use [Unknown]
  - Product substitution issue [None]
  - Hip arthroplasty [Unknown]

NARRATIVE: CASE EVENT DATE: 20170905
